FAERS Safety Report 16791169 (Version 2)
Quarter: 2019Q4

REPORT INFORMATION
  Report Type: Spontaneous
  Country: JP (occurrence: JP)
  Receive Date: 20190910
  Receipt Date: 20191004
  Transmission Date: 20200122
  Serious: Yes (Other)
  Sender: FDA-Public Use
  Company Number: JP-PFIZER INC-2019387551

PATIENT
  Age: 72 Year
  Sex: Male
  Weight: 64 kg

DRUGS (10)
  1. PRECEDEX [Suspect]
     Active Substance: DEXMEDETOMIDINE HYDROCHLORIDE
     Dosage: 4.0 ML/HOUR
     Route: 042
     Dates: start: 20190730, end: 20190730
  2. DORMICUM [MIDAZOLAM] [Suspect]
     Active Substance: MIDAZOLAM HYDROCHLORIDE
     Dosage: 2 ML, UNK (ONE AMPULE OF THE SOLUTION DILUTED WITH 8 ML OF NORMAL SALINE)
     Route: 042
     Dates: start: 20190730
  3. PRECEDEX [Suspect]
     Active Substance: DEXMEDETOMIDINE HYDROCHLORIDE
     Dosage: 5.0 ML/HOUR
     Route: 042
     Dates: start: 20190730
  4. DORMICUM [MIDAZOLAM] [Suspect]
     Active Substance: MIDAZOLAM HYDROCHLORIDE
     Indication: SEDATIVE THERAPY
     Dosage: 2 ML, UNK (ONE AMPULE OF THE SOLUTION DILUTED WITH 8 ML OF NORMAL SALINE)
     Route: 042
     Dates: start: 20190730
  5. DORMICUM [MIDAZOLAM] [Suspect]
     Active Substance: MIDAZOLAM HYDROCHLORIDE
     Dosage: 2 ML, UNK (ONE AMPULE OF THE SOLUTION DILUTED WITH 8 ML OF NORMAL SALINE)
     Route: 042
     Dates: start: 20190730
  6. SOSEGON [PENTAZOCINE] [Concomitant]
     Active Substance: PENTAZOCINE
     Indication: SEDATIVE THERAPY
     Dosage: 7.5 MG, UNK (HALF AN AMPULE)
     Route: 042
     Dates: start: 20190730
  7. SOSEGON [PENTAZOCINE] [Concomitant]
     Active Substance: PENTAZOCINE
     Dosage: 7.5 MG, UNK (HALF AN AMPULE)
     Dates: start: 20190730
  8. PRECEDEX [Suspect]
     Active Substance: DEXMEDETOMIDINE HYDROCHLORIDE
     Indication: LOCAL ANAESTHESIA
     Dosage: 6 MCG/KG/HOUR (96 ML/HOUR)
     Route: 042
     Dates: start: 20190730
  9. PRECEDEX [Suspect]
     Active Substance: DEXMEDETOMIDINE HYDROCHLORIDE
     Dosage: 0.4 MCG/KG/HOUR (6.4 ML/HOUR)
     Route: 042
     Dates: start: 20190730
  10. DORMICUM [MIDAZOLAM] [Suspect]
     Active Substance: MIDAZOLAM HYDROCHLORIDE
     Dosage: 2 ML, UNK (ONE AMPULE OF THE SOLUTION DILUTED WITH 8 ML OF NORMAL SALINE)
     Route: 042
     Dates: start: 20190730

REACTIONS (3)
  - Bradycardia [Recovered/Resolved]
  - Somnolence [Recovered/Resolved]
  - Sedation complication [Recovered/Resolved]

NARRATIVE: CASE EVENT DATE: 20190730
